FAERS Safety Report 15262176 (Version 2)
Quarter: 2018Q3

REPORT INFORMATION
  Report Type: Report from Study
  Country: US (occurrence: US)
  Receive Date: 20180809
  Receipt Date: 20180822
  Transmission Date: 20181010
  Serious: Yes (Hospitalization, Other)
  Sender: FDA-Public Use
  Company Number: US-GILEAD-2018-0349485

PATIENT
  Age: 64 Year
  Sex: Male

DRUGS (8)
  1. TOUJEO [Concomitant]
     Active Substance: INSULIN GLARGINE
     Dosage: NOT PROVIDED, SUBCUTANEOUS INJECTION
  2. PROMACTA [Concomitant]
     Active Substance: ELTROMBOPAG OLAMINE
     Dosage: NOT PROVIDED
  3. HUMALOG [Concomitant]
     Active Substance: INSULIN LISPRO
     Dosage: NOT PROVIDED, SUBCUTANEOUS INJECTION SLIDING SCALE TWICE DAILY
     Dates: start: 201805
  4. IMMUNE BOOST BY CODRAL [Concomitant]
     Indication: IMMUNE ENHANCEMENT THERAPY
     Dosage: UNKNOWN
  5. IDELALISIB [Suspect]
     Active Substance: IDELALISIB
     Indication: CHRONIC LYMPHOCYTIC LEUKAEMIA
     Dosage: 100 MG, BID
     Route: 048
     Dates: start: 20180303, end: 20180731
  6. IDELALISIB [Suspect]
     Active Substance: IDELALISIB
     Dosage: 100 MG, BID
     Route: 048
     Dates: start: 2018
  7. IDELALISIB [Suspect]
     Active Substance: IDELALISIB
     Dosage: 100 MG, BID
     Route: 048
  8. VICTOZA [Suspect]
     Active Substance: LIRAGLUTIDE
     Indication: DIABETES MELLITUS
     Dosage: NOT PROVIDED, SUBCUTANEOUS INJECTION
     Route: 058
     Dates: start: 201805

REACTIONS (15)
  - Furuncle [Recovered/Resolved]
  - Gastric disorder [Recovered/Resolved]
  - Dyspepsia [Recovered/Resolved]
  - Gastritis [Unknown]
  - Fatigue [Not Recovered/Not Resolved]
  - Arthritis [Unknown]
  - Bile output abnormal [Not Recovered/Not Resolved]
  - Increased appetite [Not Recovered/Not Resolved]
  - Intestinal obstruction [Not Recovered/Not Resolved]
  - Blood glucose increased [Not Recovered/Not Resolved]
  - Furuncle [Recovering/Resolving]
  - Platelet count decreased [Recovered/Resolved]
  - Infection [Not Recovered/Not Resolved]
  - Vomiting [Unknown]
  - Product use issue [Recovered/Resolved]

NARRATIVE: CASE EVENT DATE: 201803
